FAERS Safety Report 6962371-1 (Version None)
Quarter: 2010Q3

REPORT INFORMATION
  Report Type: 
  Country: None (occurrence: None)
  Receive Date: 20100823
  Receipt Date: 20100715
  Transmission Date: 20110219
  Serious: No
  Sender: FDA-Public Use
  Company Number: 015746

PATIENT
  Age: 39 Year
  Sex: Female
  Weight: 109 kg

DRUGS (3)
  1. CIMZIA [Suspect]
     Indication: CROHN'S DISEASE
     Dosage: 400 MG 1X/2 WEEKS SUBCUTANEOUS
     Route: 058
     Dates: start: 20100622
  2. METHOTREXATE [Concomitant]
  3. IMODIUM ADVANCED /01493801/ [Concomitant]

REACTIONS (4)
  - DRUG INEFFECTIVE [None]
  - INCREASED APPETITE [None]
  - INJECTION SITE PAIN [None]
  - WEIGHT INCREASED [None]
